FAERS Safety Report 6031186-3 (Version None)
Quarter: 2009Q1

REPORT INFORMATION
  Report Type: 
  Country: None (occurrence: None)
  Receive Date: 20090108
  Receipt Date: 20081231
  Transmission Date: 20090719
  Serious: Yes (Other)
  Sender: FDA-Public Use
  Company Number: US-B.I. PHARMACEUTICALS,INC./RIDGEFIELD-2008-BP-16498BP

PATIENT
  Sex: Male

DRUGS (15)
  1. FLOMAX [Suspect]
     Indication: PROSTATOMEGALY
     Dosage: .4MG
     Route: 048
     Dates: start: 19980101
  2. SYNTHROID [Concomitant]
     Dosage: .1MG
  3. COREG [Concomitant]
  4. PLAVIX [Concomitant]
     Dosage: 75MG
  5. ASPIRIN [Concomitant]
     Dosage: 81MG
  6. DIALYVITE [Concomitant]
  7. DIGOXIN [Concomitant]
  8. PHOSLO [Concomitant]
     Dosage: 1334MG
  9. ZOCOR [Concomitant]
     Dosage: 20MG
  10. LEXAPRO [Concomitant]
     Dosage: 10MG
  11. MIRAPEX [Concomitant]
     Dosage: .25MG
  12. AMBIEN [Concomitant]
     Dosage: 10MG
  13. ZYRTEC [Concomitant]
     Indication: HYPERSENSITIVITY
     Dosage: 10MG
  14. LIDOCAINE/PRILOCAINE CREAM [Concomitant]
  15. EPOGEN [Concomitant]

REACTIONS (3)
  - AORTIC ANEURYSM [None]
  - CARDIAC DISORDER [None]
  - RENAL FAILURE CHRONIC [None]
